FAERS Safety Report 8387499-3 (Version None)
Quarter: 2012Q2

REPORT INFORMATION
  Report Type: 
  Country: None (occurrence: None)
  Receive Date: 20120525
  Receipt Date: 20120517
  Transmission Date: 20120825
  Serious: Yes (Other)
  Sender: FDA-Public Use
  Company Number: JP-VERTEX PHARMACEUTICALS INC.-AE-2012-007447

PATIENT
  Age: 62 Year
  Sex: Male

DRUGS (9)
  1. PEG-INTRON [Concomitant]
     Indication: HEPATITIS C
     Route: 051
     Dates: start: 20120508
  2. REBETOL [Concomitant]
     Indication: HEPATITIS C
     Route: 048
     Dates: start: 20120508
  3. AMLODIPINE BESYLATE [Concomitant]
     Route: 048
     Dates: end: 20120512
  4. TELAVIC (TELAPREVIR) [Suspect]
     Indication: HEPATITIS C
     Route: 048
     Dates: start: 20120508, end: 20120512
  5. TETUCUR S [Concomitant]
     Route: 048
  6. BISOPROLOL FUMARATE [Concomitant]
     Route: 048
     Dates: end: 20120513
  7. OLMESARTAN MEDOXOMIL [Concomitant]
     Route: 048
     Dates: end: 20120513
  8. RASILEZ [Concomitant]
     Route: 048
     Dates: end: 20120511
  9. AMOBAN [Concomitant]
     Route: 048

REACTIONS (3)
  - DRUG ERUPTION [None]
  - BLOOD CREATININE INCREASED [None]
  - RENAL IMPAIRMENT [None]
